FAERS Safety Report 9093513 (Version 1)
Quarter: 2013Q1

REPORT INFORMATION
  Report Type: Spontaneous
  Country: NO (occurrence: NO)
  Receive Date: 20130201
  Receipt Date: 20130201
  Transmission Date: 20140127
  Serious: Yes (Life-Threatening)
  Sender: FDA-Public Use
  Company Number: NO-UCBSA-077132

PATIENT
  Age: 66 Year
  Sex: Female

DRUGS (3)
  1. CIMZIA [Suspect]
     Indication: RHEUMATOID ARTHRITIS
     Route: 051
     Dates: start: 20100825, end: 20120711
  2. FOLIC ACID [Concomitant]
     Route: 048
     Dates: start: 20070424
  3. METHOTREXATE [Concomitant]
     Indication: RHEUMATOID ARTHRITIS
     Route: 048
     Dates: start: 20070424

REACTIONS (2)
  - Escherichia sepsis [Recovered/Resolved]
  - Mycotic aneurysm [Recovered/Resolved]
